FAERS Safety Report 15293600 (Version 1)
Quarter: 2018Q3

REPORT INFORMATION
  Report Type: Spontaneous
  Country: US (occurrence: US)
  Receive Date: 20180820
  Receipt Date: 20180820
  Transmission Date: 20181010
  Serious: No
  Sender: FDA-Public Use
  Company Number: US-TEVA-807267USA

PATIENT
  Sex: Female

DRUGS (1)
  1. VENLAFAXINE [Suspect]
     Active Substance: VENLAFAXINE HYDROCHLORIDE

REACTIONS (7)
  - Insomnia [Unknown]
  - Dizziness [Unknown]
  - Withdrawal syndrome [Unknown]
  - Pain [Unknown]
  - Nausea [Unknown]
  - Hyperhidrosis [Unknown]
  - Product physical issue [Unknown]
